FAERS Safety Report 6303812-2 (Version None)
Quarter: 2009Q3

REPORT INFORMATION
  Report Type: 
  Country: None (occurrence: None)
  Receive Date: 20090807
  Receipt Date: 20090807
  Transmission Date: 20100115
  Serious: No
  Sender: FDA-Public Use
  Company Number: None

PATIENT

DRUGS (1)
  1. THYROID TAB [Suspect]
     Indication: HYPOTHYROIDISM
     Dosage: 90 MG ONCE A DAY O47
     Dates: start: 20010101

REACTIONS (7)
  - HAIR DISORDER [None]
  - HYPOTHYROIDISM [None]
  - MUSCULAR WEAKNESS [None]
  - MYALGIA [None]
  - NAIL DISORDER [None]
  - PRODUCT QUALITY ISSUE [None]
  - WEIGHT INCREASED [None]
